FAERS Safety Report 7328201-3 (Version None)
Quarter: 2011Q1

REPORT INFORMATION
  Report Type: 
  Country: None (occurrence: None)
  Receive Date: 20110303
  Receipt Date: 20110224
  Transmission Date: 20110831
  Serious: Yes (Other)
  Sender: FDA-Public Use
  Company Number: US-NOVOPROD-323086

PATIENT
  Age: 70 Year
  Sex: Male

DRUGS (3)
  1. VICTOZA [Suspect]
     Dosage: 0.6 MG, QD X 1 WEEK
     Route: 058
  2. VICTOZA [Suspect]
     Indication: TYPE 2 DIABETES MELLITUS
     Dosage: 1.8 MG, QD
     Route: 058
  3. VICTOZA [Suspect]
     Dosage: 1.2 MG, QD X 1 WEEK

REACTIONS (5)
  - VOMITING [None]
  - CHILLS [None]
  - DIARRHOEA [None]
  - URTICARIA [None]
  - NAUSEA [None]
